FAERS Safety Report 8590646-1 (Version None)
Quarter: 2012Q3

REPORT INFORMATION
  Report Type: 
  Country: None (occurrence: None)
  Receive Date: 20120813
  Receipt Date: 20120807
  Transmission Date: 20120928
  Serious: No
  Sender: FDA-Public Use
  Company Number: US-PFIZER INC-2012192879

PATIENT
  Age: 45 Year
  Sex: Female
  Weight: 51.247 kg

DRUGS (1)
  1. ZYVOX [Suspect]
     Indication: MYCOBACTERIAL INFECTION
     Dosage: 600 MG, 2X/DAY
     Route: 048
     Dates: start: 20120701

REACTIONS (1)
  - RASH [None]
